FAERS Safety Report 6927556-9 (Version None)
Quarter: 2010Q3

REPORT INFORMATION
  Report Type: 
  Country: None (occurrence: None)
  Receive Date: 20100812
  Receipt Date: 20100727
  Transmission Date: 20110219
  Serious: Yes (Death)
  Sender: FDA-Public Use
  Company Number: 2010US000042

PATIENT
  Age: 65 Year
  Sex: Male

DRUGS (11)
  1. ENTEREG [Suspect]
     Indication: POSTOPERATIVE ILEUS
     Dosage: 12 MG; PO
     Route: 048
     Dates: start: 20100721, end: 20100722
  2. ISOSORBIDE [Concomitant]
  3. NITROGLYCERIN [Concomitant]
  4. GLIPIZIDE [Concomitant]
  5. TYLOX [Concomitant]
  6. ALLOPURINOL [Concomitant]
  7. IMODIUM [Concomitant]
  8. POTASSIUM [Concomitant]
  9. SIMVASTATIN [Concomitant]
  10. SPIRIVA [Concomitant]
  11. ASPIRIN [Concomitant]

REACTIONS (8)
  - ACUTE MYOCARDIAL INFARCTION [None]
  - DYSPNOEA [None]
  - HYPERTENSION [None]
  - PROCEDURAL HYPOTENSION [None]
  - RESPIRATORY ACIDOSIS [None]
  - RESPIRATORY FAILURE [None]
  - SHOCK [None]
  - TACHYCARDIA [None]
